FAERS Safety Report 10422052 (Version 1)
Quarter: 2014Q3

REPORT INFORMATION
  Report Type: Spontaneous
  Country: US (occurrence: US)
  Receive Date: 20140901
  Receipt Date: 20140901
  Transmission Date: 20150326
  Serious: No
  Sender: FDA-Public Use
  Company Number: US-SA-2013SA103752

PATIENT
  Age: 74 Year
  Sex: Female
  Weight: 67.13 kg

DRUGS (8)
  1. IRBESARTAN + HCTZ [Suspect]
     Active Substance: HYDROCHLOROTHIAZIDE\IRBESARTAN
     Route: 065
  2. NIFEDIPINE. [Concomitant]
     Active Substance: NIFEDIPINE
     Indication: BLOOD PRESSURE
     Route: 065
  3. ECOTRIN [Suspect]
     Active Substance: ASPIRIN
     Route: 065
  4. ECOTRIN [Suspect]
     Active Substance: ASPIRIN
     Route: 065
     Dates: start: 1995
  5. ISORBIDE [Concomitant]
     Active Substance: ISOSORBIDE
     Route: 048
  6. LIVALO [Concomitant]
     Active Substance: PITAVASTATIN CALCIUM
     Indication: BLOOD CHOLESTEROL
     Route: 065
     Dates: start: 20110425
  7. AVAPRO [Suspect]
     Active Substance: IRBESARTAN
     Indication: BLOOD PRESSURE
     Route: 048
     Dates: start: 20091001, end: 20130522
  8. VITAMIN D [Concomitant]
     Active Substance: CHOLECALCIFEROL
     Route: 065
     Dates: start: 20110422

REACTIONS (4)
  - Decreased appetite [Recovered/Resolved]
  - Asthenia [Unknown]
  - Dizziness [Unknown]
  - Malaise [Unknown]
